FAERS Safety Report 19485291 (Version 2)
Quarter: 2021Q3

REPORT INFORMATION
  Report Type: Report from Study
  Country: US (occurrence: US)
  Receive Date: 20210702
  Receipt Date: 20210824
  Transmission Date: 20211014
  Serious: No
  Sender: FDA-Public Use
  Company Number: US-ACADIA PHARMACEUTICALS INC.-ACA-2021-PIM-002181

PATIENT
  Sex: Male

DRUGS (2)
  1. NUPLAZID [Suspect]
     Active Substance: PIMAVANSERIN TARTRATE
     Indication: PARKINSON^S DISEASE
     Dosage: 10 MILLIGRAM, BID
     Route: 048
     Dates: start: 202106
  2. NUPLAZID [Suspect]
     Active Substance: PIMAVANSERIN TARTRATE
     Dosage: 10 MILLIGRAM, QD, SOMETIMES TAKES ONLY 1 TABLET INSTEAD OF 2
     Route: 048

REACTIONS (4)
  - Prescribed underdose [Unknown]
  - Hallucination [Unknown]
  - Abnormal dreams [Unknown]
  - Intentional underdose [Unknown]
